FAERS Safety Report 8542397-7 (Version None)
Quarter: 2012Q3

REPORT INFORMATION
  Report Type: 
  Country: None (occurrence: None)
  Receive Date: 20120726
  Receipt Date: 20111219
  Transmission Date: 20120928
  Serious: Yes (Hospitalization)
  Sender: FDA-Public Use
  Company Number: US-ASTRAZENECA-2011SE49367

PATIENT
  Age: 57 Year
  Sex: Male
  Weight: 95.3 kg

DRUGS (2)
  1. SEROQUEL [Suspect]
     Indication: BIPOLAR DISORDER
     Route: 048
     Dates: start: 20040101
  2. SEROQUEL [Suspect]
     Route: 048

REACTIONS (6)
  - DEPRESSION [None]
  - MALAISE [None]
  - DRUG WITHDRAWAL SYNDROME [None]
  - BIPOLAR DISORDER [None]
  - DRUG DOSE OMISSION [None]
  - ANXIETY [None]
